FAERS Safety Report 7283858-0 (Version None)
Quarter: 2011Q1

REPORT INFORMATION
  Report Type: 
  Country: None (occurrence: None)
  Receive Date: 20110209
  Receipt Date: 20110207
  Transmission Date: 20110831
  Serious: Yes (Life-Threatening)
  Sender: FDA-Public Use
  Company Number: GB-PFIZER INC-2010140488

PATIENT
  Age: 68 Year
  Sex: Male

DRUGS (12)
  1. BECLOMETASONE DIPROPIONATE [Concomitant]
  2. CLONAZEPAM [Concomitant]
  3. RAMIPRIL [Concomitant]
  4. FOLIC ACID [Concomitant]
  5. SPIRONOLACTONE [Suspect]
     Indication: CARDIAC FAILURE
     Dosage: 12.5 MG, UNK
     Route: 002
     Dates: start: 20100923, end: 20101007
  6. ACETYLSALICYLIC ACID [Concomitant]
  7. CALCIUM CARBONATE [Concomitant]
  8. ALLOPURINOL [Concomitant]
  9. CARVEDILOL [Concomitant]
  10. ALFACALCIDOL [Concomitant]
  11. OMEPRAZOLE [Concomitant]
  12. SALBUTAMOL [Concomitant]

REACTIONS (1)
  - THROMBOCYTOPENIA [None]
